FAERS Safety Report 10995256 (Version 1)
Quarter: 2015Q2

REPORT INFORMATION
  Report Type: Spontaneous
  Country: US (occurrence: US)
  Receive Date: 20150407
  Receipt Date: 20150407
  Transmission Date: 20150821
  Serious: Yes (Death)
  Sender: FDA-Public Use
  Company Number: US-ASTRAZENECA-2014SE39920

PATIENT
  Age: 25591 Day
  Sex: Female

DRUGS (29)
  1. TRIGLIDE [Concomitant]
     Active Substance: FENOFIBRATE
  2. METOCLOPRAMIDE. [Concomitant]
     Active Substance: METOCLOPRAMIDE
  3. LIPITOR [Concomitant]
     Active Substance: ATORVASTATIN CALCIUM
  4. BUPROPION HCL [Concomitant]
     Active Substance: BUPROPION HYDROCHLORIDE
  5. ALBUTEROL. [Concomitant]
     Active Substance: ALBUTEROL
  6. NABUMETONE. [Concomitant]
     Active Substance: NABUMETONE
  7. AVAPRO [Concomitant]
     Active Substance: IRBESARTAN
  8. AZITHROMYCIN [Concomitant]
     Active Substance: AZITHROMYCIN ANHYDROUS
  9. FENOFIBRATE. [Concomitant]
     Active Substance: FENOFIBRATE
  10. FUROSEMIDE. [Concomitant]
     Active Substance: FUROSEMIDE
  11. AMIGESIC [Concomitant]
  12. LOTREL [Concomitant]
     Active Substance: AMLODIPINE BESYLATE\BENAZEPRIL HYDROCHLORIDE
     Dosage: 5-10 MCG
  13. GABAPENTIN. [Concomitant]
     Active Substance: GABAPENTIN
  14. FLURBIPROFEN. [Concomitant]
     Active Substance: FLURBIPROFEN
  15. CREON [Concomitant]
     Active Substance: PANCRELIPASE AMYLASE\PANCRELIPASE LIPASE\PANCRELIPASE PROTEASE
  16. NEXIUM [Concomitant]
     Active Substance: ESOMEPRAZOLE MAGNESIUM
  17. HUMIRA [Concomitant]
     Active Substance: ADALIMUMAB
  18. SYMBICORT [Concomitant]
     Active Substance: BUDESONIDE\FORMOTEROL FUMARATE DIHYDRATE
     Dosage: 160-4.5 MCG
  19. MELOXICAM. [Concomitant]
     Active Substance: MELOXICAM
  20. ETODOLAC. [Concomitant]
     Active Substance: ETODOLAC
  21. AVELOX [Concomitant]
     Active Substance: MOXIFLOXACIN HYDROCHLORIDE
  22. ATORVASTATIN CALCIUM. [Concomitant]
     Active Substance: ATORVASTATIN CALCIUM
  23. METOPROLOL TARTRATE. [Concomitant]
     Active Substance: METOPROLOL TARTRATE
  24. BYETTA [Suspect]
     Active Substance: EXENATIDE
     Indication: TYPE 2 DIABETES MELLITUS
     Dosage: 10 MCG
     Route: 065
     Dates: start: 20061230
  25. FLECTOR [Concomitant]
     Active Substance: DICLOFENAC EPOLAMINE
  26. BYETTA [Suspect]
     Active Substance: EXENATIDE
     Indication: TYPE 2 DIABETES MELLITUS
     Route: 065
     Dates: start: 20061230, end: 200812
  27. BYETTA [Suspect]
     Active Substance: EXENATIDE
     Indication: TYPE 2 DIABETES MELLITUS
     Dosage: 10 MCG
     Route: 065
     Dates: start: 20080901
  28. SPIRIVA [Concomitant]
     Active Substance: TIOTROPIUM BROMIDE MONOHYDRATE
  29. CLINDAMYCIN [Concomitant]
     Active Substance: CLINDAMYCIN\CLINDAMYCIN PHOSPHATE

REACTIONS (1)
  - Intraductal papillary-mucinous carcinoma of pancreas [Fatal]

NARRATIVE: CASE EVENT DATE: 20101109
